FAERS Safety Report 20214498 (Version 1)
Quarter: 2021Q4

REPORT INFORMATION
  Report Type: Spontaneous
  Country: JP (occurrence: JP)
  Receive Date: 20211221
  Receipt Date: 20211221
  Transmission Date: 20220303
  Serious: Yes (Other)
  Sender: FDA-Public Use
  Company Number: JP-NOVARTISPH-NVSJ2021JP020331

PATIENT
  Age: 51 Year
  Sex: Male

DRUGS (1)
  1. FINGOLIMOD HYDROCHLORIDE [Suspect]
     Active Substance: FINGOLIMOD HYDROCHLORIDE
     Indication: Secondary progressive multiple sclerosis
     Dosage: UNK
     Route: 065
     Dates: start: 201910, end: 202111

REACTIONS (14)
  - Secondary progressive multiple sclerosis [Unknown]
  - Disease progression [Unknown]
  - Muscular weakness [Unknown]
  - Monoplegia [Unknown]
  - Neurogenic bladder [Unknown]
  - Incontinence [Unknown]
  - Pollakiuria [Unknown]
  - Ataxia [Unknown]
  - Visual field defect [Unknown]
  - Dyslalia [Unknown]
  - Aphasia [Unknown]
  - Apraxia [Unknown]
  - Hyperreflexia [Unknown]
  - Expanded disability status scale [Unknown]

NARRATIVE: CASE EVENT DATE: 20210301
